FAERS Safety Report 5196591-6 (Version None)
Quarter: 2006Q4

REPORT INFORMATION
  Report Type: 
  Country: None (occurrence: None)
  Receive Date: 20061229
  Receipt Date: 20061229
  Transmission Date: 20070319
  Serious: Yes (Life-Threatening)
  Sender: FDA-Public Use
  Company Number: None

PATIENT
  Sex: Male

DRUGS (14)
  1. CLOZAPINE [Suspect]
     Indication: SCHIZOPHRENIA, UNDIFFERENTIATED TYPE
     Dosage: 25 MG  B.I.D.  PO
     Route: 048
     Dates: start: 20060808, end: 20061208
  2. CLOZAPINE [Suspect]
     Indication: SCHIZOPHRENIA, UNDIFFERENTIATED TYPE
     Dosage: 50MG  B.I.D  PO
     Route: 048
     Dates: start: 20060808, end: 20061208
  3. COZAAR [Concomitant]
  4. AMITIZA [Concomitant]
  5. DESMOPRESSIN [Concomitant]
  6. METFORMIN HCL [Concomitant]
  7. NEXIUM [Concomitant]
  8. VALPROIC ACID [Concomitant]
  9. LACTULOSE [Concomitant]
  10. SENNA [Concomitant]
  11. GABAPENTIN [Concomitant]
  12. CLONAZEPAM [Concomitant]
  13. CLONIDINE [Concomitant]
  14. NORVASC [Concomitant]

REACTIONS (1)
  - NEUTROPHIL COUNT DECREASED [None]
